FAERS Safety Report 8876763 (Version 1)
Quarter: 2012Q4

REPORT INFORMATION
  Report Type: Spontaneous
  Country: US (occurrence: None)
  Receive Date: 20121024
  Receipt Date: 20121024
  Transmission Date: 20130627
  Serious: Yes (Other)
  Sender: FDA-Public Use
  Company Number: JPI-P-025813

PATIENT
  Age: 46 Year
  Sex: Male
  Weight: 90.72 kg

DRUGS (3)
  1. XYREM [Suspect]
     Route: 048
     Dates: start: 20121010
  2. OXYCODONE AND ACETAMINOPHEN [Suspect]
     Indication: BACK PAIN
     Dates: start: 2011, end: 201208
  3. IBUPROFEN [Concomitant]

REACTIONS (2)
  - Back pain [None]
  - Anxiety [None]
